FAERS Safety Report 6196864-4 (Version None)
Quarter: 2009Q2

REPORT INFORMATION
  Report Type: 
  Country: None (occurrence: None)
  Receive Date: 20090518
  Receipt Date: 20090518
  Transmission Date: 20091009
  Serious: No
  Sender: FDA-Public Use
  Company Number: None

PATIENT
  Age: 35 Year
  Sex: Female
  Weight: 104.3273 kg

DRUGS (1)
  1. CIPROFLOXACIN HCL [Suspect]
     Indication: URINARY TRACT INFECTION
     Dosage: 1 500MG TABLET 2 TIMES PER DAY PO
     Route: 048
     Dates: start: 20090410, end: 20090417

REACTIONS (2)
  - TENDON PAIN [None]
  - TENDONITIS [None]
